FAERS Safety Report 19489802 (Version 1)
Quarter: 2021Q3

REPORT INFORMATION
  Report Type: Report from Study
  Country: US (occurrence: US)
  Receive Date: 20210704
  Receipt Date: 20210704
  Transmission Date: 20211014
  Serious: No
  Sender: FDA-Public Use
  Company Number: NVSC2021US145762

PATIENT
  Age: 36 Year
  Sex: Female

DRUGS (1)
  1. XIIDRA [Suspect]
     Active Substance: LIFITEGRAST
     Indication: DRY EYE
     Dosage: 1 DRP, BID
     Route: 047
     Dates: start: 202105

REACTIONS (5)
  - Snoring [Unknown]
  - Throat irritation [Unknown]
  - Dysgeusia [Unknown]
  - Pruritus [Unknown]
  - Odynophagia [Unknown]

NARRATIVE: CASE EVENT DATE: 202106
